FAERS Safety Report 7149800-8 (Version None)
Quarter: 2010Q4

REPORT INFORMATION
  Report Type: 
  Country: None (occurrence: None)
  Receive Date: 20101210
  Receipt Date: 20101201
  Transmission Date: 20110411
  Serious: No
  Sender: FDA-Public Use
  Company Number: US-BIOGENIDEC-2010BI040654

PATIENT
  Age: 33 Year
  Sex: Female

DRUGS (5)
  1. TYSABRI [Suspect]
     Indication: MULTIPLE SCLEROSIS
     Route: 042
     Dates: start: 20100310
  2. TYSABRI [Suspect]
     Route: 042
     Dates: start: 20070731, end: 20070731
  3. TYSABRI [Suspect]
     Route: 042
     Dates: start: 20071101, end: 20071101
  4. AVONEX [Concomitant]
     Indication: MULTIPLE SCLEROSIS
     Route: 030
     Dates: start: 20100401
  5. AVONEX [Concomitant]
     Route: 030
     Dates: start: 19980101, end: 20080114

REACTIONS (1)
  - HERNIA [None]
